FAERS Safety Report 8364739-8 (Version None)
Quarter: 2012Q2

REPORT INFORMATION
  Report Type: 
  Country: None (occurrence: None)
  Receive Date: 20120516
  Receipt Date: 20120507
  Transmission Date: 20120825
  Serious: No
  Sender: FDA-Public Use
  Company Number: US-B.I. PHARMACEUTICALS,INC./RIDGEFIELD-2012-BP-10228BP

PATIENT
  Sex: Male

DRUGS (2)
  1. COMBIVENT [Suspect]
  2. ALBUTEROL [Suspect]

REACTIONS (1)
  - DRUG INEFFECTIVE [None]
